FAERS Safety Report 15939962 (Version 3)
Quarter: 2019Q2

REPORT INFORMATION
  Report Type: Spontaneous
  Country: US (occurrence: US)
  Receive Date: 20190208
  Receipt Date: 20190531
  Transmission Date: 20190711
  Serious: Yes (Other)
  Sender: FDA-Public Use
  Company Number: US-ASTRAZENECA-2018SF34537

PATIENT
  Age: 15540 Day
  Sex: Male

DRUGS (21)
  1. LIPITOR [Concomitant]
     Active Substance: ATORVASTATIN CALCIUM
  2. PROCARDIA XL [Concomitant]
     Active Substance: NIFEDIPINE
  3. NEXIUM [Suspect]
     Active Substance: ESOMEPRAZOLE MAGNESIUM
     Indication: PEPTIC ULCER
     Route: 048
     Dates: start: 20110519, end: 20150713
  4. NEXIUM [Suspect]
     Active Substance: ESOMEPRAZOLE MAGNESIUM
     Indication: PEPTIC ULCER
     Route: 048
     Dates: start: 20010220, end: 20171231
  5. NEXIUM 24HR [Suspect]
     Active Substance: ESOMEPRAZOLE MAGNESIUM
     Indication: PEPTIC ULCER
     Route: 048
     Dates: start: 20140328, end: 20171231
  6. PRILOSEC [Suspect]
     Active Substance: OMEPRAZOLE MAGNESIUM
     Indication: PEPTIC ULCER
     Route: 048
     Dates: start: 19890914, end: 20171231
  7. PREVACID [Suspect]
     Active Substance: LANSOPRAZOLE
     Indication: PEPTIC ULCER
     Route: 065
     Dates: start: 19950510, end: 20171231
  8. PRED FORTE [Concomitant]
     Active Substance: PREDNISOLONE ACETATE
  9. PREVACID 24 HR [Suspect]
     Active Substance: LANSOPRAZOLE
     Indication: PEPTIC ULCER
     Route: 065
     Dates: start: 20110519, end: 20150713
  10. PREVACID 24 HR [Suspect]
     Active Substance: LANSOPRAZOLE
     Indication: PEPTIC ULCER
     Route: 065
     Dates: start: 20090518, end: 20171231
  11. CATAPRES [Concomitant]
     Active Substance: CLONIDINE HYDROCHLORIDE
  12. PRILOSEC OTC [Suspect]
     Active Substance: OMEPRAZOLE MAGNESIUM
     Indication: PEPTIC ULCER
     Route: 048
     Dates: start: 20030620, end: 20171231
  13. NORVASC [Concomitant]
     Active Substance: AMLODIPINE BESYLATE
  14. DEMADEX [Concomitant]
     Active Substance: TORSEMIDE
  15. PRILOSEC [Suspect]
     Active Substance: OMEPRAZOLE MAGNESIUM
     Indication: PEPTIC ULCER
     Route: 048
     Dates: start: 20110519, end: 20150713
  16. PRILOSEC OTC [Suspect]
     Active Substance: OMEPRAZOLE MAGNESIUM
     Indication: PEPTIC ULCER
     Route: 048
     Dates: start: 20110519, end: 20150713
  17. PREVACID [Suspect]
     Active Substance: LANSOPRAZOLE
     Indication: PEPTIC ULCER
     Route: 065
     Dates: start: 20110519, end: 20150713
  18. LONITEN [Concomitant]
     Active Substance: MINOXIDIL
  19. NEXIUM 24HR [Suspect]
     Active Substance: ESOMEPRAZOLE MAGNESIUM
     Indication: PEPTIC ULCER
     Route: 048
     Dates: start: 20110519, end: 20150713
  20. KLOR-CON [Concomitant]
     Active Substance: POTASSIUM CHLORIDE
  21. COREG [Concomitant]
     Active Substance: CARVEDILOL

REACTIONS (4)
  - Chronic kidney disease [Not Recovered/Not Resolved]
  - Renal failure [Unknown]
  - Renal injury [Unknown]
  - Acute kidney injury [Not Recovered/Not Resolved]

NARRATIVE: CASE EVENT DATE: 20160506
